FAERS Safety Report 11287878 (Version 1)
Quarter: 2015Q3

REPORT INFORMATION
  Report Type: Spontaneous
  Country: US (occurrence: US)
  Receive Date: 20150721
  Receipt Date: 20150721
  Transmission Date: 20151125
  Serious: No
  Sender: FDA-Public Use
  Company Number: US-UNITED THERAPEUTICS-UNT-2015-001680

PATIENT
  Age: 69 Year
  Sex: Male
  Weight: 72.56 kg

DRUGS (7)
  1. ADCIRCA [Concomitant]
     Active Substance: TADALAFIL
     Indication: PRODUCT USED FOR UNKNOWN INDICATION
  2. ASPIRIN                            /00002701/ [Concomitant]
     Active Substance: ASPIRIN
     Indication: PRODUCT USED FOR UNKNOWN INDICATION
  3. REMODULIN [Suspect]
     Active Substance: TREPROSTINIL
     Dosage: 0.0975 ?G/KG/MIN, CONTINUING
     Route: 041
     Dates: start: 20130821
  4. TRACLEER [Concomitant]
     Active Substance: BOSENTAN
     Indication: PRODUCT USED FOR UNKNOWN INDICATION
  5. COUMADIN [Concomitant]
     Active Substance: WARFARIN SODIUM
     Indication: PRODUCT USED FOR UNKNOWN INDICATION
  6. ESBRIET [Concomitant]
     Active Substance: PIRFENIDONE
     Indication: PRODUCT USED FOR UNKNOWN INDICATION
  7. REMODULIN [Suspect]
     Active Substance: TREPROSTINIL
     Indication: PULMONARY ARTERIAL HYPERTENSION
     Dosage: 0.0975 ?G/KG/MIN, CONTINUING
     Route: 041
     Dates: start: 20130820

REACTIONS (10)
  - Anxiety [Recovered/Resolved]
  - International normalised ratio decreased [Unknown]
  - Nasal congestion [Unknown]
  - Rhinorrhoea [Unknown]
  - Headache [Recovered/Resolved]
  - Mobility decreased [Unknown]
  - Influenza [Recovered/Resolved]
  - Device alarm issue [Unknown]
  - Musculoskeletal pain [Unknown]
  - Rash [Unknown]

NARRATIVE: CASE EVENT DATE: 201501
